FAERS Safety Report 9038697 (Version 1)
Quarter: 2013Q1

REPORT INFORMATION
  Report Type: Spontaneous
  Country: US (occurrence: None)
  Receive Date: 20130123
  Receipt Date: 20130123
  Transmission Date: 20140127
  Serious: Yes (Other)
  Sender: FDA-Public Use
  Company Number: None

PATIENT
  Sex: Female
  Weight: 53.52 kg

DRUGS (1)
  1. LIPITOR [Suspect]

REACTIONS (4)
  - Neck pain [None]
  - Middle insomnia [None]
  - Ligament sprain [None]
  - Spondylitis [None]
